FAERS Safety Report 13143007 (Version 1)
Quarter: 2017Q1

REPORT INFORMATION
  Report Type: Spontaneous
  Country: US (occurrence: US)
  Receive Date: 20170123
  Receipt Date: 20170123
  Transmission Date: 20170428
  Serious: Yes (Other)
  Sender: FDA-Public Use
  Company Number: US-ASTRAZENECA-2017SE06205

PATIENT
  Age: 34 Day
  Sex: Male
  Weight: 9.3 kg

DRUGS (1)
  1. SYNAGIS [Suspect]
     Active Substance: PALIVIZUMAB
     Indication: LUNG DISORDER
     Dosage: MONTHLY
     Route: 030
     Dates: start: 20151231

REACTIONS (4)
  - Drug dose omission [Unknown]
  - Off label use [Unknown]
  - Product use issue [Unknown]
  - Joint dislocation [Unknown]

NARRATIVE: CASE EVENT DATE: 20151231
